FAERS Safety Report 13151860 (Version 2)
Quarter: 2017Q1

REPORT INFORMATION
  Report Type: Spontaneous
  Country: JP (occurrence: JP)
  Receive Date: 20170125
  Receipt Date: 20170210
  Transmission Date: 20170428
  Serious: Yes (Other)
  Sender: FDA-Public Use
  Company Number: JP-PFIZER INC-2016569376

PATIENT
  Age: 67 Year
  Sex: Female

DRUGS (7)
  1. LYRICA [Suspect]
     Active Substance: PREGABALIN
     Indication: SCIATICA
     Dosage: 50 MG, 1X/DAY
     Route: 048
     Dates: start: 20160404, end: 20160410
  2. LYRICA [Suspect]
     Active Substance: PREGABALIN
     Dosage: 150 MG, 1X/DAY
     Route: 048
     Dates: start: 20160411, end: 20160614
  3. TEPRENONE [Concomitant]
     Active Substance: TEPRENONE
     Dosage: 100 MG, 1X/DAY
     Route: 048
     Dates: start: 20160516
  4. ARTZ [Concomitant]
     Active Substance: HYALURONATE SODIUM
     Dosage: 25 MG, 1X/DAY
     Route: 061
     Dates: start: 20160404, end: 20160516
  5. LYRICA [Suspect]
     Active Substance: PREGABALIN
     Dosage: 300 MG, 1X/DAY
     Route: 048
     Dates: start: 20160615, end: 20160710
  6. CELECOX [Suspect]
     Active Substance: CELECOXIB
     Indication: OSTEOARTHRITIS
     Dosage: 200 MG, 1X/DAY
     Route: 048
     Dates: start: 20140418, end: 20160710
  7. CELECOX [Suspect]
     Active Substance: CELECOXIB
     Dosage: 200 MG, 1X/DAY
     Route: 048
     Dates: start: 20160418, end: 20160710

REACTIONS (2)
  - Drug-induced liver injury [Recovered/Resolved]
  - Cholecystitis [Recovered/Resolved]

NARRATIVE: CASE EVENT DATE: 20160614
